FAERS Safety Report 18043757 (Version 1)
Quarter: 2020Q3

REPORT INFORMATION
  Report Type: Spontaneous
  Country: US (occurrence: US)
  Receive Date: 20200720
  Receipt Date: 20200720
  Transmission Date: 20201103
  Serious: Yes (Hospitalization)
  Sender: FDA-Public Use
  Company Number: None

PATIENT
  Age: 77 Year
  Sex: Male

DRUGS (2)
  1. PREDNISONE (PREDNISONE 5MG TAB) [Suspect]
     Active Substance: PREDNISONE
     Indication: RENAL TRANSPLANT
     Route: 048
     Dates: start: 20200421, end: 20200425
  2. TACROLIMUS (TACROLIMUS 1MG CAP) [Suspect]
     Active Substance: TACROLIMUS
     Indication: RENAL TRANSPLANT
     Route: 048
     Dates: start: 20200421, end: 20200425

REACTIONS (5)
  - Haemoglobin decreased [None]
  - Aplastic anaemia [None]
  - Toxicity to various agents [None]
  - Melaena [None]
  - Fall [None]

NARRATIVE: CASE EVENT DATE: 20200421
